FAERS Safety Report 5854231-4 (Version None)
Quarter: 2008Q3

REPORT INFORMATION
  Report Type: 
  Country: None (occurrence: None)
  Receive Date: 20080822
  Receipt Date: 20080819
  Transmission Date: 20090109
  Serious: Yes (Other)
  Sender: FDA-Public Use
  Company Number: PHEH2008US07285

PATIENT
  Age: 13 Year
  Sex: Female

DRUGS (1)
  1. TRILEPTAL [Suspect]
     Indication: CONVULSION

REACTIONS (2)
  - ABNORMAL DREAMS [None]
  - ALICE IN WONDERLAND SYNDROME [None]
